FAERS Safety Report 9404333 (Version 1)
Quarter: 2013Q3

REPORT INFORMATION
  Report Type: Spontaneous
  Country: US (occurrence: None)
  Receive Date: 20130716
  Receipt Date: 20130716
  Transmission Date: 20140515
  Serious: No
  Sender: FDA-Public Use
  Company Number: None

PATIENT
  Sex: 0

DRUGS (1)
  1. HAWAIIAN TROPIC PROTECTIVE DRY OIL BROAD SPECTRUM SPF 15 [Suspect]

REACTIONS (4)
  - Sunburn [None]
  - Pain of skin [None]
  - Hyperaesthesia [None]
  - Erythema [None]
